FAERS Safety Report 11185619 (Version 1)
Quarter: 2015Q2

REPORT INFORMATION
  Report Type: Other
  Country: US (occurrence: US)
  Receive Date: 20150612
  Receipt Date: 20150612
  Transmission Date: 20150821
  Serious: Yes (Other)
  Sender: FDA-Public Use
  Company Number: US-ENDO PHARMACEUTICALS INC-2015-001205

PATIENT
  Age: 32 Week
  Sex: Female

DRUGS (4)
  1. PROPYLTHIOURACIL TABLETS 50 MG [Suspect]
     Active Substance: PROPYLTHIOURACIL
     Indication: HYPERTHYROIDISM
     Route: 064
  2. PROPYLTHIOURACIL TABLETS 50 MG [Suspect]
     Active Substance: PROPYLTHIOURACIL
     Route: 064
  3. PROPYLTHIOURACIL TABLETS 50 MG [Suspect]
     Active Substance: PROPYLTHIOURACIL
     Route: 064
  4. LEVOTHYROXINE [Concomitant]
     Active Substance: LEVOTHYROXINE
     Indication: THYROID HORMONE REPLACEMENT THERAPY
     Route: 064

REACTIONS (1)
  - Congestive cardiomyopathy [Recovered/Resolved]
